FAERS Safety Report 10054906 (Version 2)
Quarter: 2014Q2

REPORT INFORMATION
  Report Type: Spontaneous
  Country: BE (occurrence: BE)
  Receive Date: 20140402
  Receipt Date: 20140402
  Transmission Date: 20141212
  Serious: Yes (Other)
  Sender: FDA-Public Use
  Company Number: PHHY2014BE038299

PATIENT
  Age: 54 Year
  Sex: Male

DRUGS (5)
  1. TEGRETOL CR [Suspect]
     Indication: EPILEPSY
     Dosage: 400 MG, BID
     Route: 048
     Dates: start: 1998
  2. RASILEZ HCT [Suspect]
     Indication: HYPERTENSION
     Dosage: 1 DF (300/25MG), QD (7AM)
     Route: 048
     Dates: start: 20140120
  3. VASEXTEN [Concomitant]
     Indication: HYPERTENSION
     Dosage: 10 MG, QD (7AM)
  4. VASEXTEN [Concomitant]
     Dosage: 20 UNK, UNK
     Dates: start: 20140327
  5. ALDACTONE [Concomitant]
     Indication: HYPERTENSION
     Dosage: 50 MG, QD (7AM)

REACTIONS (4)
  - Blood pressure systolic increased [Unknown]
  - Blood pressure inadequately controlled [Unknown]
  - Gamma-glutamyltransferase increased [Unknown]
  - Drug ineffective [Not Recovered/Not Resolved]
